FAERS Safety Report 6639166-1 (Version None)
Quarter: 2010Q1

REPORT INFORMATION
  Report Type: 
  Country: None (occurrence: None)
  Receive Date: 20100312
  Receipt Date: 20100301
  Transmission Date: 20100710
  Serious: Yes (Death, Hospitalization)
  Sender: FDA-Public Use
  Company Number: TW-JNJFOC-20081102552

PATIENT
  Age: 70 Year
  Sex: Male

DRUGS (3)
  1. DECITABINE (DECITABINE) LYOPHILIZED POWDER [Suspect]
     Indication: ACUTE MYELOID LEUKAEMIA
     Dosage: SEE IMAGE
     Route: 042
     Dates: start: 20080821
  2. MYCOSTATIN (NYSTATIN) UNSPECIFIED [Concomitant]
  3. FARLUTAL (MEDROXYPROGESTERONE ACETATE) UNSPECIFIED [Concomitant]

REACTIONS (28)
  - BENIGN PROSTATIC HYPERPLASIA [None]
  - BLOOD POTASSIUM DECREASED [None]
  - BLOOD PRESSURE SYSTOLIC INCREASED [None]
  - BLOOD SODIUM DECREASED [None]
  - BLOOD UREA INCREASED [None]
  - CAECITIS [None]
  - CHOLELITHIASIS [None]
  - CLOSTRIDIUM DIFFICILE COLITIS [None]
  - COLON CANCER [None]
  - DECREASED APPETITE [None]
  - ENTEROCOCCAL INFECTION [None]
  - HAEMATURIA [None]
  - HAEMOGLOBIN DECREASED [None]
  - HAEMORRHOIDS [None]
  - MALAISE [None]
  - METASTASES TO LIVER [None]
  - MONOCYTE COUNT INCREASED [None]
  - NAUSEA [None]
  - NEUTROPENIA [None]
  - ORAL CANDIDIASIS [None]
  - PATHOGEN RESISTANCE [None]
  - PLASMA CELLS INCREASED [None]
  - PNEUMONIA [None]
  - PRODUCTIVE COUGH [None]
  - SEPTIC SHOCK [None]
  - THROMBOCYTOPENIA [None]
  - URINARY RETENTION [None]
  - VOMITING [None]
